FAERS Safety Report 12463374 (Version 1)
Quarter: 2016Q2

REPORT INFORMATION
  Report Type: Spontaneous
  Country: JP (occurrence: JP)
  Receive Date: 20160614
  Receipt Date: 20160614
  Transmission Date: 20160815
  Serious: Yes (Life-Threatening, Other)
  Sender: FDA-Public Use
  Company Number: JP-ACCORD-041414

PATIENT
  Age: 65 Year
  Sex: Female

DRUGS (3)
  1. GEMCITABINE/GEMCITABINE HYDROCHLORIDE [Suspect]
     Active Substance: GEMCITABINE\GEMCITABINE HYDROCHLORIDE
     Indication: UTERINE LEIOMYOSARCOMA
     Dosage: OVER 90 MIN; ON DAYS 1 AND 8, 8 CYCLES
     Route: 042
  2. FILGRASTIM/GRANULOCYTE COLONY STIMULATING/LENOGRASTM [Concomitant]
     Dosage: ON DAY NINE OF A 21-DAY CYCLE SCHEDULED EVERY 3 WEEKS
  3. DOCETAXEL. [Suspect]
     Active Substance: DOCETAXEL
     Indication: UTERINE LEIOMYOSARCOMA
     Dosage: ON DAY 8

REACTIONS (1)
  - Leukopenia [Unknown]
